FAERS Safety Report 4962022-1 (Version None)
Quarter: 2006Q2

REPORT INFORMATION
  Report Type: 
  Country: None (occurrence: None)
  Receive Date: 20060404
  Receipt Date: 20060323
  Transmission Date: 20061013
  Serious: Yes (Hospitalization)
  Sender: FDA-Public Use
  Company Number: CH-BRISTOL-MYERS SQUIBB COMPANY-13329248

PATIENT
  Age: 24 Year
  Sex: Female

DRUGS (3)
  1. IFOSFAMIDE [Suspect]
     Indication: OVARIAN CANCER
     Route: 042
     Dates: start: 20060202, end: 20060202
  2. TAXOL [Concomitant]
     Indication: OVARIAN CANCER
     Route: 042
  3. MORPHINE HCL [Concomitant]

REACTIONS (4)
  - CEREBELLAR SYNDROME [None]
  - ENCEPHALOPATHY [None]
  - HALLUCINATION [None]
  - SOMNOLENCE [None]
